FAERS Safety Report 9368888 (Version 1)
Quarter: 2013Q2

REPORT INFORMATION
  Report Type: Spontaneous
  Country: CN (occurrence: None)
  Receive Date: 20130621
  Receipt Date: 20130621
  Transmission Date: 20140414
  Serious: Yes (Hospitalization, Other)
  Sender: FDA-Public Use
  Company Number: 148795

PATIENT
  Age: 15 Year
  Sex: Male

DRUGS (2)
  1. CYTARABINE [Suspect]
  2. DAUNORUBICIN [Suspect]

REACTIONS (3)
  - Epilepsy [None]
  - Central nervous system lesion [None]
  - No therapeutic response [None]
